FAERS Safety Report 4628482-0 (Version None)
Quarter: 2005Q2

REPORT INFORMATION
  Report Type: 
  Country: None (occurrence: None)
  Receive Date: 20050406
  Receipt Date: 20050329
  Transmission Date: 20051028
  Serious: Yes (Other)
  Sender: FDA-Public Use
  Company Number: DK-ABBOTT-05P-044-0295448-00

PATIENT
  Sex: Male
  Weight: 88 kg

DRUGS (4)
  1. SEVORANE LIQUID FOR INHALATION [Suspect]
     Indication: GENERAL ANAESTHESIA
     Dosage: NOT REPORTED, NOT REPORTED
     Route: 055
     Dates: start: 20050308, end: 20050308
  2. FENTANYL CITRATE [Concomitant]
     Indication: DRUG USE FOR UNKNOWN INDICATION
     Dosage: NOT REPORTED, NOT REPORTED, NOT REPORTED
     Dates: start: 20050308, end: 20050308
  3. CISATRACURIUM BESILATE [Concomitant]
     Indication: DRUG USE FOR UNKNOWN INDICATION
     Dosage: NOT REPORTED, NOT REPORTED, NOT REPORTED
     Dates: start: 20050308, end: 20050308
  4. ATROPINE SULFATE [Concomitant]
     Indication: DRUG USE FOR UNKNOWN INDICATION
     Dosage: NOT REPORTED, NOT REPORTED, NOT REPORTED
     Dates: start: 20050308, end: 20050308

REACTIONS (2)
  - NEPHROGENIC DIABETES INSIPIDUS [None]
  - PROCEDURAL COMPLICATION [None]
